FAERS Safety Report 11157159 (Version 1)
Quarter: 2015Q2

REPORT INFORMATION
  Report Type: Spontaneous
  Country: US (occurrence: None)
  Receive Date: 20150601
  Receipt Date: 20150601
  Transmission Date: 20150821
  Serious: No
  Sender: FDA-Public Use
  Company Number: None

PATIENT
  Age: 35 Year
  Sex: Female
  Weight: 81.65 kg

DRUGS (3)
  1. CYMBALTA [Concomitant]
     Active Substance: DULOXETINE HYDROCHLORIDE
  2. MULTI VITAMIN [Concomitant]
     Active Substance: VITAMINS
  3. PRAZOSIN 1 MG MYLAN [Suspect]
     Active Substance: PRAZOSIN
     Indication: ANXIETY
     Dosage: 1 MG TWICE PER DAY  TWICE DAILY TAKEN BY MOUTH
     Route: 048
     Dates: start: 20150528, end: 20150530

REACTIONS (2)
  - Swelling face [None]
  - Peripheral swelling [None]

NARRATIVE: CASE EVENT DATE: 20150529
